FAERS Safety Report 4991734-9 (Version None)
Quarter: 2006Q2

REPORT INFORMATION
  Report Type: 
  Country: None (occurrence: None)
  Receive Date: 20060502
  Receipt Date: 20060427
  Transmission Date: 20061013
  Serious: Yes (Hospitalization)
  Sender: FDA-Public Use
  Company Number: 06-000241

PATIENT
  Age: 47 Year
  Sex: Female

DRUGS (2)
  1. DOVONEX [Suspect]
     Indication: PSORIASIS
     Dosage: 0, TOPICAL
     Route: 061
     Dates: start: 20040203, end: 20041201
  2. DIPROLENE [Concomitant]

REACTIONS (6)
  - CONDITION AGGRAVATED [None]
  - ECZEMA INFECTED [None]
  - HYPERCHOLESTEROLAEMIA [None]
  - HYPERKERATOSIS [None]
  - HYPERSENSITIVITY [None]
  - SKIN TEST POSITIVE [None]
